FAERS Safety Report 6551576-X (Version None)
Quarter: 2010Q1

REPORT INFORMATION
  Report Type: 
  Country: None (occurrence: None)
  Receive Date: 20100126
  Receipt Date: 20100108
  Transmission Date: 20100710
  Serious: No
  Sender: FDA-Public Use
  Company Number: US-ROXANE LABORATORIES, INC.-2010-RO-00010RO

PATIENT
  Sex: Female

DRUGS (1)
  1. ATROPINE D [Suspect]
     Dates: start: 20091125, end: 20100101

REACTIONS (1)
  - PRURITUS [None]
